FAERS Safety Report 5471067-7 (Version None)
Quarter: 2007Q3

REPORT INFORMATION
  Report Type: 
  Country: None (occurrence: None)
  Receive Date: 20070928
  Receipt Date: 20070926
  Transmission Date: 20080115
  Serious: Yes (Death)
  Sender: FDA-Public Use
  Company Number: US-GENENTECH-247249

PATIENT
  Sex: Female
  Weight: 51.247 kg

DRUGS (4)
  1. BEVACIZUMAB [Suspect]
     Indication: NEOPLASM MALIGNANT
     Dosage: 15 MG/KG, UNK
     Dates: start: 20070414
  2. ERLOTINIB [Suspect]
     Indication: NEOPLASM MALIGNANT
     Dosage: 150 MG, UNK
     Dates: start: 20070417
  3. TAXOL [Concomitant]
     Indication: NEOPLASM MALIGNANT
     Dosage: 98.4 MG/M2, UNK
     Dates: start: 20070417
  4. CARBOPLATIN [Concomitant]
     Indication: NEOPLASM MALIGNANT
     Dosage: 3.4 AUC, UNK
     Dates: start: 20070417

REACTIONS (1)
  - DEATH [None]
